FAERS Safety Report 21692744 (Version 1)
Quarter: 2022Q4

REPORT INFORMATION
  Report Type: Spontaneous
  Country: DK (occurrence: DK)
  Receive Date: 20221207
  Receipt Date: 20221207
  Transmission Date: 20230112
  Serious: Yes (Other)
  Sender: FDA-Public Use
  Company Number: DK-ALKEM LABORATORIES LIMITED-DK-ALKEM-2022-13685

PATIENT
  Age: 11 Year
  Sex: Female

DRUGS (1)
  1. ARIPIPRAZOLE [Suspect]
     Active Substance: ARIPIPRAZOLE
     Indication: Incontinence
     Dosage: 2.5 MILLIGRAM PER DAY (QD)
     Route: 065

REACTIONS (3)
  - Acute psychosis [Unknown]
  - Alopecia [Unknown]
  - Depression [Unknown]
